FAERS Safety Report 14361648 (Version 1)
Quarter: 2018Q1

REPORT INFORMATION
  Report Type: Spontaneous
  Country: US (occurrence: US)
  Receive Date: 20180108
  Receipt Date: 20180108
  Transmission Date: 20180509
  Serious: No
  Sender: FDA-Public Use
  Company Number: US-AUROBINDO-AUR-APU-2014-13148

PATIENT
  Age: 51 Year
  Sex: Male
  Weight: 68.93 kg

DRUGS (2)
  1. DEXTROAMPHET SACCHARAT, AMPHET ASPARTATE, DEXTROAMPHET SULFATE AND AMPHET SULFAT [Suspect]
     Active Substance: AMPHETAMINE ASPARTATE\AMPHETAMINE SULFATE\DEXTROAMPHETAMINE SACCHARATE\DEXTROAMPHETAMINE SULFATE
     Indication: WAXY FLEXIBILITY
     Dosage: 10 MG, TWO TIMES A DAY
     Route: 048
     Dates: start: 20141024
  2. DEXTROAMPHET SACCHARAT, AMPHET ASPARTATE, DEXTROAMPHET SULFATE AND AMPHET SULFAT [Suspect]
     Active Substance: AMPHETAMINE ASPARTATE\AMPHETAMINE SULFATE\DEXTROAMPHETAMINE SACCHARATE\DEXTROAMPHETAMINE SULFATE
     Indication: NARCOLEPSY

REACTIONS (5)
  - Headache [Unknown]
  - Palpitations [Unknown]
  - Drug ineffective [Unknown]
  - Abdominal discomfort [Unknown]
  - Drug administration error [Unknown]

NARRATIVE: CASE EVENT DATE: 20141024
